FAERS Safety Report 25769033 (Version 1)
Quarter: 2025Q3

REPORT INFORMATION
  Report Type: Spontaneous
  Country: CN (occurrence: CN)
  Receive Date: 20250905
  Receipt Date: 20250905
  Transmission Date: 20251021
  Serious: Yes (Hospitalization, Other)
  Sender: PURDUE
  Company Number: CN-NAPPMUNDI-GBR-2025-0128466

PATIENT
  Age: 83 Year
  Sex: Female
  Weight: 69 kg

DRUGS (1)
  1. OXYCODONE HYDROCHLORIDE [Suspect]
     Active Substance: OXYCODONE HYDROCHLORIDE
     Indication: Cancer pain
     Dosage: 30 MILLIGRAM, BID
     Route: 048
     Dates: start: 20250815, end: 20250826

REACTIONS (5)
  - Respiratory depression [Recovering/Resolving]
  - Altered state of consciousness [Recovering/Resolving]
  - Miosis [Recovering/Resolving]
  - Toxicity to various agents [Recovering/Resolving]
  - Drug ineffective [Unknown]

NARRATIVE: CASE EVENT DATE: 20250801
